FAERS Safety Report 5407371-8 (Version None)
Quarter: 2007Q3

REPORT INFORMATION
  Report Type: 
  Country: None (occurrence: None)
  Receive Date: 20070807
  Receipt Date: 20070727
  Transmission Date: 20080115
  Serious: Yes (Other)
  Sender: FDA-Public Use
  Company Number: US-ELI_LILLY_AND_COMPANY-US200707006808

PATIENT
  Age: 49 Year
  Sex: Male

DRUGS (5)
  1. GEMCITABINE HCL [Suspect]
     Indication: SARCOMA
     Dosage: 1000 MG/M2, UNK
  2. DOCETAXEL [Concomitant]
     Indication: SARCOMA
     Dosage: 40 MG/M2, UNK
  3. METHYLPHENIDATE HCL [Concomitant]
     Indication: ATTENTION DEFICIT/HYPERACTIVITY DISORDER
  4. LORATADINE [Concomitant]
  5. DARBEPOETIN ALFA [Concomitant]

REACTIONS (3)
  - NEPHROPATHY TOXIC [None]
  - RENAL FAILURE [None]
  - THROMBOCYTOPENIA [None]
